FAERS Safety Report 7803286-6 (Version None)
Quarter: 2011Q4

REPORT INFORMATION
  Report Type: 
  Country: None (occurrence: None)
  Receive Date: 20111007
  Receipt Date: 20110926
  Transmission Date: 20120403
  Serious: Yes (Disabling)
  Sender: FDA-Public Use
  Company Number: FR-SANOFI-AVENTIS-2011SA062647

PATIENT
  Age: 68 Year
  Sex: Female

DRUGS (3)
  1. KERLONE [Suspect]
     Route: 048
     Dates: start: 20000101, end: 20110301
  2. CRESTOR [Suspect]
     Route: 048
     Dates: start: 20060901, end: 20090901
  3. KERLONE [Suspect]
     Indication: MIGRAINE
     Route: 048
     Dates: start: 20000101, end: 20110301

REACTIONS (2)
  - MUSCULAR WEAKNESS [None]
  - PAIN [None]
